FAERS Safety Report 7291450-7 (Version None)
Quarter: 2011Q1

REPORT INFORMATION
  Report Type: 
  Country: None (occurrence: None)
  Receive Date: 20110201
  Receipt Date: 20110119
  Transmission Date: 20110831
  Serious: Yes (Hospitalization)
  Sender: FDA-Public Use
  Company Number: MPS1-1000382

PATIENT
  Age: 11 Year
  Sex: Female
  Weight: 14 kg

DRUGS (3)
  1. ALDURAZYME [Suspect]
     Indication: MUCOPOLYSACCHARIDOSIS I
     Dosage: 8.7 MG, 1X/W, INTRAVENOUS
     Route: 042
     Dates: start: 20100609
  2. LORATADINE [Concomitant]
  3. IBUPROFEN [Concomitant]

REACTIONS (1)
  - PNEUMONIA [None]
